FAERS Safety Report 5490639-7 (Version None)
Quarter: 2007Q4

REPORT INFORMATION
  Report Type: 
  Country: None (occurrence: None)
  Receive Date: 20071019
  Receipt Date: 20071012
  Transmission Date: 20080405
  Serious: Yes (Other)
  Sender: FDA-Public Use
  Company Number: CA-ASTRAZENECA-2007UW23962

PATIENT
  Age: 73 Year
  Sex: Male

DRUGS (5)
  1. CRESTOR [Suspect]
     Route: 048
  2. ASAPHEN [Concomitant]
  3. MAVIK [Concomitant]
  4. PLAVIX [Concomitant]
  5. PMS-METOPROLOL [Concomitant]

REACTIONS (5)
  - GAIT DISTURBANCE [None]
  - MUSCULOSKELETAL PAIN [None]
  - NECK PAIN [None]
  - OEDEMA PERIPHERAL [None]
  - PAIN IN EXTREMITY [None]
